FAERS Safety Report 19183479 (Version 1)
Quarter: 2021Q2

REPORT INFORMATION
  Report Type: Spontaneous
  Country: GB (occurrence: GB)
  Receive Date: 20210427
  Receipt Date: 20210427
  Transmission Date: 20210717
  Serious: Yes (Hospitalization, Disabling, Other)
  Sender: FDA-Public Use
  Company Number: GB-AUROBINDO-AUR-APL-2010-01331

PATIENT
  Age: 70 Year
  Sex: Male

DRUGS (12)
  1. ASPIRIN. [Interacting]
     Active Substance: ASPIRIN
     Dosage: 75 MILLIGRAM, ONCE A DAY
     Route: 065
  2. CIPROFLOXACIN. [Suspect]
     Active Substance: CIPROFLOXACIN
     Indication: CHALAZION
     Dosage: 750 MILLIGRAM, TWO TIMES A DAY
     Route: 048
  3. ASPIRIN. [Interacting]
     Active Substance: ASPIRIN
     Indication: CHEST PAIN
     Dosage: UNK UNK, ONCE A DAY
     Route: 065
  4. METRONIDAZOLE. [Interacting]
     Active Substance: METRONIDAZOLE
     Indication: CHALAZION
     Dosage: 400 MILLIGRAM, 3 TIMES A DAY
     Route: 048
  5. WARFARIN [Interacting]
     Active Substance: WARFARIN
     Indication: PULMONARY EMBOLISM
     Dosage: UNK
     Route: 065
  6. CLOPIDOGREL [Interacting]
     Active Substance: CLOPIDOGREL BISULFATE
     Indication: CHEST PAIN
     Dosage: UNK UNK, ONCE A DAY
     Route: 065
  7. CLOPIDOGREL [Interacting]
     Active Substance: CLOPIDOGREL BISULFATE
     Dosage: 300 MILLIGRAM
     Route: 065
  8. CLOPIDOGREL [Interacting]
     Active Substance: CLOPIDOGREL BISULFATE
     Dosage: 75 MILLIGRAM, ONCE A DAY
     Route: 065
  9. ERYTHROMYCIN. [Interacting]
     Active Substance: ERYTHROMYCIN
     Indication: CELLULITIS
     Dosage: 250 MILLIGRAM, FOUR TIMES/DAY
     Route: 048
  10. MEROPENEM. [Interacting]
     Active Substance: MEROPENEM
     Indication: ANTIBIOTIC THERAPY
     Dosage: 2 GRAM, TWO TIMES A DAY
     Route: 042
  11. ASPIRIN. [Interacting]
     Active Substance: ASPIRIN
     Dosage: 300 MILLIGRAM
     Route: 065
  12. TEICOPLANIN [Interacting]
     Active Substance: TEICOPLANIN
     Indication: ANTIBIOTIC THERAPY
     Dosage: 400 MILLIGRAM, ONCE A DAY
     Route: 030

REACTIONS (9)
  - International normalised ratio increased [Recovered/Resolved]
  - Pyrexia [Unknown]
  - Hyphaema [Not Recovered/Not Resolved]
  - Headache [Unknown]
  - Decreased appetite [Unknown]
  - Nausea [Unknown]
  - Eye pain [Recovered/Resolved with Sequelae]
  - Drug interaction [Recovered/Resolved with Sequelae]
  - Intraocular pressure increased [Not Recovered/Not Resolved]
